FAERS Safety Report 18909148 (Version 2)
Quarter: 2021Q1

REPORT INFORMATION
  Report Type: Spontaneous
  Country: US (occurrence: US)
  Receive Date: 20210218
  Receipt Date: 20210331
  Transmission Date: 20210420
  Serious: Yes (Other)
  Sender: FDA-Public Use
  Company Number: US-GLAXOSMITHKLINE-US2021GSK045918

PATIENT
  Sex: Female

DRUGS (2)
  1. ZANTAC [Suspect]
     Active Substance: RANITIDINE HYDROCHLORIDE
     Indication: HEPATIC NEOPLASM
     Dosage: 150 MG, QD
     Route: 065
     Dates: start: 199801, end: 201801
  2. ZANTAC [Suspect]
     Active Substance: RANITIDINE HYDROCHLORIDE
     Indication: HEPATIC NEOPLASM
     Dosage: 150 MG, QD
     Route: 065
     Dates: start: 199801, end: 201801

REACTIONS (1)
  - Hepatic cancer [Unknown]
